FAERS Safety Report 15655571 (Version 2)
Quarter: 2018Q4

REPORT INFORMATION
  Report Type: Spontaneous
  Country: US (occurrence: US)
  Receive Date: 20181126
  Receipt Date: 20181129
  Transmission Date: 20190205
  Serious: No
  Sender: FDA-Public Use
  Company Number: US-SA-2018SA122491

PATIENT
  Age: 2 Year
  Sex: Female

DRUGS (1)
  1. LANTUS [Suspect]
     Active Substance: INSULIN GLARGINE
     Indication: TYPE 1 DIABETES MELLITUS
     Dosage: 2.5 DF,QD
     Route: 051
     Dates: start: 201708

REACTIONS (2)
  - Blood glucose increased [Unknown]
  - Incorrect dosage administered [Unknown]
